FAERS Safety Report 5946487-4 (Version None)
Quarter: 2008Q4

REPORT INFORMATION
  Report Type: 
  Country: None (occurrence: None)
  Receive Date: 20081110
  Receipt Date: 20081107
  Transmission Date: 20090506
  Serious: Yes (Death)
  Sender: FDA-Public Use
  Company Number: A0755489A

PATIENT
  Age: 77 Year
  Sex: Male
  Weight: 43 kg

DRUGS (3)
  1. SERETIDE DISKUS [Suspect]
     Indication: BRONCHOPULMONARY DISEASE
     Route: 055
     Dates: start: 20061101, end: 20070201
  2. CHEMOTHERAPY [Concomitant]
  3. OMEPRAZOLE [Concomitant]

REACTIONS (1)
  - NEOPLASM PROGRESSION [None]
